FAERS Safety Report 8802142 (Version 2)
Quarter: 2012Q4

REPORT INFORMATION
  Report Type: 
  Country: US (occurrence: US)
  Receive Date: 20120921
  Receipt Date: 20121217
  Transmission Date: 20130627
  Serious: Yes (Other)
  Sender: FDA-Public Use
  Company Number: PHEH2012US018337

PATIENT
  Sex: Female

DRUGS (7)
  1. GILENYA [Suspect]
     Indication: MULTIPLE SCLEROSIS
     Dosage: 0.5 mg, QD
     Route: 048
     Dates: start: 20120326
  2. SIMVASTATIN [Suspect]
  3. PROVIGIL [Concomitant]
  4. OMEPRAZOLE [Concomitant]
  5. VESICARE [Concomitant]
  6. CYMBALTA [Concomitant]
  7. LIPITOR [Concomitant]
     Dosage: UNK UKN, UNK

REACTIONS (8)
  - Cataract [Not Recovered/Not Resolved]
  - Vision blurred [Not Recovered/Not Resolved]
  - Increased tendency to bruise [Not Recovered/Not Resolved]
  - Bleeding time prolonged [Not Recovered/Not Resolved]
  - Gingival bleeding [Not Recovered/Not Resolved]
  - Fibromyalgia [Not Recovered/Not Resolved]
  - Vitreous floaters [Unknown]
  - Liver function test abnormal [Not Recovered/Not Resolved]
